FAERS Safety Report 18080946 (Version 1)
Quarter: 2020Q3

REPORT INFORMATION
  Report Type: Spontaneous
  Country: GB (occurrence: GB)
  Receive Date: 20200728
  Receipt Date: 20200728
  Transmission Date: 20201103
  Serious: Yes (Other)
  Sender: FDA-Public Use
  Company Number: GB-MYLANLABS-2020M1066815

PATIENT
  Age: 59 Year
  Sex: Female

DRUGS (1)
  1. LAMOTRIGINE. [Suspect]
     Active Substance: LAMOTRIGINE
     Indication: BIPOLAR DISORDER
     Dosage: 25MG ALT DIE INCREASED TO 25MG OD
     Route: 048
     Dates: start: 20200610

REACTIONS (5)
  - Back disorder [Unknown]
  - Pyrexia [Recovering/Resolving]
  - Asthenia [Unknown]
  - Body temperature increased [Unknown]
  - Leukopenia [Recovering/Resolving]

NARRATIVE: CASE EVENT DATE: 20200625
